FAERS Safety Report 7197523-1 (Version None)
Quarter: 2010Q4

REPORT INFORMATION
  Report Type: 
  Country: None (occurrence: None)
  Receive Date: 20101213
  Receipt Date: 20101206
  Transmission Date: 20110411
  Serious: Yes (Hospitalization, Other)
  Sender: FDA-Public Use
  Company Number: 2010AL000829

PATIENT
  Age: 42 Year
  Sex: Male

DRUGS (5)
  1. CITALOPRAM HYDROBROMIDE [Suspect]
     Indication: DEPRESSION
     Dosage: 20 MG;QAM;PO
     Route: 048
     Dates: start: 20090401
  2. QUETIAPINE [Concomitant]
  3. CLOZARIL [Concomitant]
  4. PIRENZEPINE [Concomitant]
  5. ALCOHOL [Concomitant]

REACTIONS (3)
  - FLAT AFFECT [None]
  - MULTIPLE DRUG OVERDOSE [None]
  - SOMNOLENCE [None]
